FAERS Safety Report 10279299 (Version 3)
Quarter: 2014Q3

REPORT INFORMATION
  Report Type: Spontaneous
  Country: US (occurrence: None)
  Receive Date: 20140701
  Receipt Date: 20140915
  Transmission Date: 20150326
  Serious: Yes (Death, Other)
  Sender: FDA-Public Use
  Company Number: 2014US003220

PATIENT
  Age: 56 Year
  Sex: Female
  Weight: 52 kg

DRUGS (11)
  1. ICLUSIG [Suspect]
     Active Substance: PONATINIB
     Indication: CHRONIC MYELOID LEUKAEMIA
     Route: 048
     Dates: start: 20140220, end: 20140418
  2. COMPAZINE (PROCHLOPERAZINE EDISYLATE) [Concomitant]
  3. PROTONIX [Concomitant]
     Active Substance: PANTOPRAZOLE SODIUM
  4. CELEXA [Concomitant]
     Active Substance: CITALOPRAM HYDROBROMIDE
  5. TRIAMCINOLONE ACETONIDE (TRIAMCINOLONE ACETONIDE) [Concomitant]
  6. ACYCLOVIR (ACICLOVIR SODIUM) [Concomitant]
  7. ENALAPRIL MALEATE (ENALAPRIL MALEATE) [Concomitant]
     Active Substance: ENALAPRIL MALEATE
  8. PROCHLORPERAZINE MALEATE (PROCHLORPERAZINE MALEATE) [Concomitant]
     Active Substance: PROCHLORPERAZINE MALEATE
  9. OXYCODONE HCL (OXYCODONE HYDROCHLORIDE) [Concomitant]
  10. AMIODARONE HCL (AMIODARONE HYDROCHLORIDE) [Concomitant]
     Active Substance: AMIODARONE HYDROCHLORIDE
  11. METOPROLOL TARTRATE (METOPROLOL TARTRATE) [Concomitant]

REACTIONS (27)
  - Back pain [None]
  - Constipation [None]
  - Nausea [None]
  - Asthenia [None]
  - Disease progression [None]
  - Bone pain [None]
  - Dyspnoea exertional [None]
  - Red cell distribution width increased [None]
  - Platelet count decreased [None]
  - Feeling abnormal [None]
  - Pain in extremity [None]
  - Haematocrit decreased [None]
  - Contusion [None]
  - Restlessness [None]
  - Lymphocyte count increased [None]
  - Malignant neoplasm progression [None]
  - Transfusion [None]
  - Hypophagia [None]
  - Gait disturbance [None]
  - Vomiting [None]
  - Mean platelet volume decreased [None]
  - Monocyte count increased [None]
  - Chronic myeloid leukaemia [None]
  - Red blood cell count decreased [None]
  - Haemoglobin decreased [None]
  - Neutrophil count decreased [None]
  - Eosinophil count increased [None]

NARRATIVE: CASE EVENT DATE: 201404
